FAERS Safety Report 23685033 (Version 5)
Quarter: 2025Q2

REPORT INFORMATION
  Report Type: Report from Study
  Country: US (occurrence: US)
  Receive Date: 20240328
  Receipt Date: 20250623
  Transmission Date: 20250717
  Serious: Yes (Other)
  Sender: ABBVIE
  Company Number: US-ABBVIE-5692903

PATIENT
  Age: 31 Year
  Sex: Male
  Weight: 47 kg

DRUGS (3)
  1. RINVOQ [Suspect]
     Active Substance: UPADACITINIB
     Indication: Crohn^s disease
     Route: 048
     Dates: start: 20240322, end: 20240322
  2. RINVOQ [Suspect]
     Active Substance: UPADACITINIB
     Indication: Crohn^s disease
     Dosage: PILL
     Route: 048
     Dates: start: 2024
  3. RINVOQ [Suspect]
     Active Substance: UPADACITINIB
     Indication: Crohn^s disease
     Route: 048
     Dates: start: 20240323

REACTIONS (5)
  - Ostomy bag placement [Unknown]
  - Post procedural sepsis [Recovered/Resolved]
  - Malabsorption [Not Recovered/Not Resolved]
  - Product residue present [Not Recovered/Not Resolved]
  - Cholecystitis [Unknown]

NARRATIVE: CASE EVENT DATE: 20240101
